FAERS Safety Report 5902937-0 (Version None)
Quarter: 2008Q3

REPORT INFORMATION
  Report Type: 
  Country: None (occurrence: None)
  Receive Date: 20080930
  Receipt Date: 20080925
  Transmission Date: 20090109
  Serious: Yes (Other)
  Sender: FDA-Public Use
  Company Number: US-BAYER-200811604BCC

PATIENT
  Age: 82 Year
  Sex: Female
  Weight: 70 kg

DRUGS (5)
  1. ASPIRIN [Suspect]
     Indication: CEREBROVASCULAR ACCIDENT PROPHYLAXIS
     Dosage: TOTAL DAILY DOSE: 81 MG  UNIT DOSE: 81 MG
     Route: 048
     Dates: end: 20080428
  2. PLAVIX [Suspect]
     Indication: DRUG USE FOR UNKNOWN INDICATION
     Dates: end: 20080321
  3. ATENOLOL [Concomitant]
  4. NEXIUM [Concomitant]
  5. PROPRANOLOL [Concomitant]

REACTIONS (2)
  - EPISTAXIS [None]
  - HAEMORRHAGE [None]
